FAERS Safety Report 5357060-3 (Version None)
Quarter: 2007Q2

REPORT INFORMATION
  Report Type: 
  Country: None (occurrence: None)
  Receive Date: 20070614
  Receipt Date: 20070611
  Transmission Date: 20071010
  Serious: Yes (Death)
  Sender: FDA-Public Use
  Company Number: BR-ASTRAZENECA-2007UW14054

PATIENT
  Age: 82 Year
  Sex: Female

DRUGS (3)
  1. CRESTOR [Suspect]
     Indication: HYPERCHOLESTEROLAEMIA
     Route: 048
  2. ARADOIS [Concomitant]
     Indication: HYPERTENSION
  3. PLAVIX [Concomitant]
     Indication: ANTICOAGULANT THERAPY

REACTIONS (1)
  - ISCHAEMIC STROKE [None]
